FAERS Safety Report 4735242-9 (Version None)
Quarter: 2005Q3

REPORT INFORMATION
  Report Type: 
  Country: None (occurrence: None)
  Receive Date: 20050802
  Receipt Date: 20050722
  Transmission Date: 20060218
  Serious: Yes (Other)
  Sender: FDA-Public Use
  Company Number: S05-USA-01614-01

PATIENT
  Age: 54 Year
  Sex: Female

DRUGS (1)
  1. CAMPRAL [Suspect]
     Indication: ABSTAINS FROM ALCOHOL
     Dosage: 666 MG TID PO
     Route: 048
     Dates: start: 20050327, end: 20050329

REACTIONS (2)
  - DIARRHOEA [None]
  - RASH PRURITIC [None]
